FAERS Safety Report 6211593-6 (Version None)
Quarter: 2009Q2

REPORT INFORMATION
  Report Type: 
  Country: None (occurrence: None)
  Receive Date: 20090602
  Receipt Date: 20090519
  Transmission Date: 20091009
  Serious: Yes (Hospitalization)
  Sender: FDA-Public Use
  Company Number: CN-NAPPMUNDI-MAG-2009-0000785

PATIENT

DRUGS (3)
  1. OXYCODONE HCL PR TABLET 20 MG [Suspect]
     Indication: PROCEDURAL PAIN
     Dosage: 1 DF, SINGLE
     Route: 048
     Dates: start: 20090424, end: 20090424
  2. ETIMICIN [Concomitant]
     Dosage: 1.5 G, BID
     Route: 042
     Dates: start: 20090422, end: 20090424
  3. SODIUM AESCINATE [Concomitant]
     Dosage: 15 MG, QID
     Route: 042
     Dates: start: 20090422, end: 20090424

REACTIONS (6)
  - ABDOMINAL DISTENSION [None]
  - DIZZINESS [None]
  - DYSPNOEA [None]
  - HYPERHIDROSIS [None]
  - PALPITATIONS [None]
  - VISION BLURRED [None]
